FAERS Safety Report 19755242 (Version 1)
Quarter: 2021Q3

REPORT INFORMATION
  Report Type: Spontaneous
  Country: US (occurrence: US)
  Receive Date: 20210827
  Receipt Date: 20210827
  Transmission Date: 20211014
  Serious: No
  Sender: FDA-Public Use
  Company Number: US-BAYER-2021-200888

PATIENT
  Age: 12 Year
  Sex: Male

DRUGS (1)
  1. CLARITIN?D 24 HOUR [Suspect]
     Active Substance: LORATADINE\PSEUDOEPHEDRINE SULFATE
     Dosage: 1 DF
     Route: 048

REACTIONS (2)
  - Tremor [Not Recovered/Not Resolved]
  - Heart rate irregular [Not Recovered/Not Resolved]
